FAERS Safety Report 17225388 (Version 4)
Quarter: 2020Q1

REPORT INFORMATION
  Report Type: Spontaneous
  Country: JP (occurrence: JP)
  Receive Date: 20200102
  Receipt Date: 20200131
  Transmission Date: 20200409
  Serious: Yes (Death, Hospitalization, Other)
  Sender: FDA-Public Use
  Company Number: JP-009507513-1708JPN001287J

PATIENT
  Age: 77 Year
  Sex: Male
  Weight: 48 kg

DRUGS (7)
  1. PRORANON [Concomitant]
     Indication: GLAUCOMA
     Dosage: UNK
     Route: 047
  2. CLARITHROMYCIN. [Concomitant]
     Active Substance: CLARITHROMYCIN
     Indication: PROPHYLAXIS
     Dosage: 200 MILLIGRAM, BID
     Route: 048
     Dates: start: 20170417, end: 20170609
  3. NEO-MEDROL EE [Concomitant]
     Dosage: UNK
     Route: 047
  4. KEYTRUDA [Suspect]
     Active Substance: PEMBROLIZUMAB
     Indication: NON-SMALL CELL LUNG CANCER
     Dosage: 200 MILLIGRAM, Q3W
     Route: 041
     Dates: start: 20170410, end: 20170704
  5. CARBOCISTEINE [Concomitant]
     Active Substance: CARBOCYSTEINE
     Indication: NON-SMALL CELL LUNG CANCER
     Dosage: 500 MG, TID
     Route: 048
  6. NEXIUM [Concomitant]
     Active Substance: ESOMEPRAZOLE MAGNESIUM
     Dosage: 20 MILLIGRAM, QD
     Route: 048
  7. HYALEIN [Concomitant]
     Active Substance: HYALURONATE SODIUM
     Dosage: UNK
     Route: 047

REACTIONS (4)
  - Cerebral haemorrhage [Fatal]
  - Malignant neoplasm progression [Recovering/Resolving]
  - Interstitial lung disease [Not Recovered/Not Resolved]
  - Pneumonia [Recovering/Resolving]

NARRATIVE: CASE EVENT DATE: 20170526
